FAERS Safety Report 4441382-4 (Version None)
Quarter: 2004Q3

REPORT INFORMATION
  Report Type: 
  Country: None (occurrence: None)
  Receive Date: 20040728
  Receipt Date: 20040507
  Transmission Date: 20050211
  Serious: No
  Sender: FDA-Public Use
  Company Number: USA040566986

PATIENT
  Age: 40 Year
  Sex: Male
  Weight: 98 kg

DRUGS (2)
  1. STRATTERA [Suspect]
     Indication: ATTENTION DEFICIT/HYPERACTIVITY DISORDER
     Dosage: 40 MG DAY
     Dates: start: 20040506
  2. PREVACID (LANSOPARZOLE) [Concomitant]

REACTIONS (4)
  - FEELING JITTERY [None]
  - NERVOUSNESS [None]
  - STOMACH DISCOMFORT [None]
  - TENSION [None]
